FAERS Safety Report 17580396 (Version 1)
Quarter: 2020Q1

REPORT INFORMATION
  Report Type: Spontaneous
  Country: US (occurrence: US)
  Receive Date: 20200325
  Receipt Date: 20200325
  Transmission Date: 20200409
  Serious: Yes (Hospitalization, Disabling, Other)
  Sender: FDA-Public Use
  Company Number: US-SA-2020SA074633

PATIENT

DRUGS (1)
  1. LEMTRADA [Suspect]
     Active Substance: ALEMTUZUMAB
     Dosage: UNK
     Route: 065
     Dates: start: 201803

REACTIONS (4)
  - Disease complication [Unknown]
  - Quadriplegia [Unknown]
  - Magnetic resonance imaging brain abnormal [Unknown]
  - Endotracheal intubation [Unknown]
